FAERS Safety Report 17930024 (Version 1)
Quarter: 2020Q2

REPORT INFORMATION
  Report Type: Other
  Country: CA (occurrence: CA)
  Receive Date: 20200623
  Receipt Date: 20200623
  Transmission Date: 20200714
  Serious: Yes (Other)
  Sender: FDA-Public Use
  Company Number: CA-APOTEX-2020AP012398

PATIENT
  Age: 30 Year
  Sex: Female

DRUGS (1)
  1. CYCLOSPORINE. [Suspect]
     Active Substance: CYCLOSPORINE
     Indication: PSORIASIS
     Dosage: 400 MG, UNK
     Route: 048

REACTIONS (3)
  - Haematemesis [Unknown]
  - Haemoptysis [Unknown]
  - Hypersensitivity [Unknown]
